FAERS Safety Report 11784988 (Version 1)
Quarter: 2015Q4

REPORT INFORMATION
  Report Type: Spontaneous
  Country: US (occurrence: None)
  Receive Date: 20151125
  Receipt Date: 20151125
  Transmission Date: 20160305
  Serious: Yes (Other)
  Sender: FDA-Public Use
  Company Number: None

PATIENT
  Age: 7 Year
  Sex: Female
  Weight: 20.41 kg

DRUGS (1)
  1. AZITHROMYCIN 200MG TEVA [Suspect]
     Active Substance: AZITHROMYCIN DIHYDRATE
     Indication: EAR INFECTION
     Dosage: 5 ML DAY ONE AND 2.5 DAY 2 - 5
     Route: 048
     Dates: start: 20151123, end: 20151123

REACTIONS (6)
  - Product taste abnormal [None]
  - Nausea [None]
  - Product quality issue [None]
  - Vomiting [None]
  - Tremor [None]
  - Malaise [None]

NARRATIVE: CASE EVENT DATE: 20151123
